FAERS Safety Report 4948059-7 (Version None)
Quarter: 2006Q1

REPORT INFORMATION
  Report Type: 
  Country: None (occurrence: None)
  Receive Date: 20060320
  Receipt Date: 20060302
  Transmission Date: 20060701
  Serious: Yes (Death, Hospitalization)
  Sender: FDA-Public Use
  Company Number: BE-BRISTOL-MYERS SQUIBB COMPANY-13301361

PATIENT
  Age: 63 Year
  Sex: Male
  Weight: 59 kg

DRUGS (5)
  1. CARBOPLATIN [Suspect]
     Indication: MESOTHELIOMA
     Route: 042
     Dates: start: 20041115, end: 20050306
  2. ALIMTA [Suspect]
     Indication: MESOTHELIOMA
     Route: 042
     Dates: start: 20041115, end: 20050306
  3. FOLIC ACID [Concomitant]
     Dates: start: 20041105
  4. VITAMIN B-12 [Concomitant]
     Dates: start: 20041105
  5. DEXAMETHASONE TAB [Concomitant]

REACTIONS (4)
  - DEHYDRATION [None]
  - FAECAL VOMITING [None]
  - ILEITIS [None]
  - SEPTIC SHOCK [None]
